FAERS Safety Report 15953131 (Version 1)
Quarter: 2019Q1

REPORT INFORMATION
  Report Type: Spontaneous
  Country: GB (occurrence: GB)
  Receive Date: 20190212
  Receipt Date: 20190212
  Transmission Date: 20190417
  Serious: Yes (Other)
  Sender: FDA-Public Use
  Company Number: PHHY2019GB030304

PATIENT
  Age: 52 Year
  Sex: Female

DRUGS (1)
  1. HYDROXYCHLOROQUINE [Suspect]
     Active Substance: HYDROXYCHLOROQUINE
     Indication: SJOGREN^S SYNDROME
     Dosage: 400 MG, QD
     Route: 065

REACTIONS (6)
  - Right atrial enlargement [Unknown]
  - Lymphadenopathy mediastinal [Unknown]
  - Cardiac failure [Recovering/Resolving]
  - Product use in unapproved indication [Unknown]
  - Congestive cardiomyopathy [Unknown]
  - Cardiomegaly [Unknown]
